FAERS Safety Report 7201251-3 (Version None)
Quarter: 2010Q4

REPORT INFORMATION
  Report Type: 
  Country: None (occurrence: None)
  Receive Date: 20101229
  Receipt Date: 20101222
  Transmission Date: 20110411
  Serious: Yes (Death, Other)
  Sender: FDA-Public Use
  Company Number: PHHY2010US86882

PATIENT
  Age: 54 Year
  Sex: Female

DRUGS (6)
  1. PREDNISONE [Suspect]
  2. AZATHIOPRINE [Suspect]
  3. CYCLOSPORINE [Suspect]
  4. TACROLIMUS [Suspect]
  5. SIROLIMUS [Suspect]
  6. VORICONAZOLE [Suspect]
     Dosage: 200 MG, BID

REACTIONS (10)
  - ACTINIC KERATOSIS [None]
  - HYPOAESTHESIA [None]
  - METASTATIC NEOPLASM [None]
  - MUSCULAR WEAKNESS [None]
  - NODULE [None]
  - PAIN IN EXTREMITY [None]
  - PHOTODERMATOSIS [None]
  - SKIN CANCER [None]
  - SKIN DISORDER [None]
  - SQUAMOUS CELL CARCINOMA [None]
